FAERS Safety Report 10901095 (Version 1)
Quarter: 2015Q1

REPORT INFORMATION
  Report Type: Spontaneous
  Country: FR (occurrence: FR)
  Receive Date: 20150310
  Receipt Date: 20150310
  Transmission Date: 20150721
  Serious: Yes (Death, Congenital Anomaly, Other)
  Sender: FDA-Public Use
  Company Number: CA-RANBAXY-2012US-53020

PATIENT

DRUGS (4)
  1. METFORMIN [Suspect]
     Active Substance: METFORMIN HYDROCHLORIDE
     Indication: TYPE 2 DIABETES MELLITUS
     Dosage: UNK
     Route: 064
  2. POTASSIUM CHLORIDE. [Suspect]
     Active Substance: POTASSIUM CHLORIDE
     Indication: PRODUCT USED FOR UNKNOWN INDICATION
     Dosage: UNK
     Route: 064
  3. HYDROCHLOROTHIAZIDE. [Suspect]
     Active Substance: HYDROCHLOROTHIAZIDE
     Indication: ESSENTIAL HYPERTENSION
     Dosage: 12.5 MG, DAILY
     Route: 064
  4. VALSARTAN. [Suspect]
     Active Substance: VALSARTAN
     Indication: ESSENTIAL HYPERTENSION
     Dosage: 80 MG, DAILY
     Route: 064

REACTIONS (9)
  - Foetal exposure during pregnancy [Unknown]
  - Foetal death [Fatal]
  - Foot deformity [Unknown]
  - Microcephaly [Unknown]
  - Oligohydramnios [Unknown]
  - Cranial sutures widening [Unknown]
  - Renal aplasia [Unknown]
  - Kidney enlargement [Unknown]
  - Deformity [Fatal]
